FAERS Safety Report 7057593-8 (Version None)
Quarter: 2010Q4

REPORT INFORMATION
  Report Type: 
  Country: None (occurrence: None)
  Receive Date: 20101022
  Receipt Date: 20101011
  Transmission Date: 20110411
  Serious: Yes (Other)
  Sender: FDA-Public Use
  Company Number: RU-ACTELION-A-CH2010-39775

PATIENT
  Sex: Female
  Weight: 18 kg

DRUGS (2)
  1. TRACLEER [Suspect]
     Indication: PULMONARY ARTERIAL HYPERTENSION
     Dosage: 31.25 MG, QD
     Route: 048
     Dates: start: 20100828
  2. CAPOTEN [Concomitant]

REACTIONS (5)
  - ACUTE HEPATIC FAILURE [None]
  - FAECES PALE [None]
  - HEPATOMEGALY [None]
  - PERICARDIAL EFFUSION [None]
  - VOMITING [None]
